FAERS Safety Report 25990548 (Version 1)
Quarter: 2025Q4

REPORT INFORMATION
  Report Type: Spontaneous
  Country: TR (occurrence: TR)
  Receive Date: 20251103
  Receipt Date: 20251103
  Transmission Date: 20260117
  Serious: Yes (Hospitalization)
  Sender: ELI LILLY AND COMPANY
  Company Number: TR-ELI_LILLY_AND_COMPANY-TR202510016758

PATIENT
  Age: 53 Year
  Sex: Female
  Weight: 97 kg

DRUGS (3)
  1. MOUNJARO [Suspect]
     Active Substance: TIRZEPATIDE
     Indication: Weight control
     Dosage: 5 MG, UNKNOWN
     Route: 065
     Dates: start: 202506
  2. MOUNJARO [Suspect]
     Active Substance: TIRZEPATIDE
     Indication: Weight control
     Dosage: 5 MG, UNKNOWN
     Route: 065
     Dates: start: 202506
  3. ADALAT [Concomitant]
     Active Substance: NIFEDIPINE
     Indication: Blood pressure abnormal

REACTIONS (4)
  - Gallbladder enlargement [Unknown]
  - Cholelithiasis [Unknown]
  - Pancreatitis [Unknown]
  - Weight decreased [Unknown]
